FAERS Safety Report 6790361-0 (Version None)
Quarter: 2010Q2

REPORT INFORMATION
  Report Type: 
  Country: None (occurrence: None)
  Receive Date: 20100624
  Receipt Date: 20100611
  Transmission Date: 20101027
  Serious: Yes (Other)
  Sender: FDA-Public Use
  Company Number: PHHY2010DE38873

PATIENT
  Sex: Male
  Weight: 75 kg

DRUGS (2)
  1. DIOVAN HCT [Suspect]
     Indication: HYPERTENSION
     Dosage: 1 TABLET (160/12.5 MG)
     Route: 048
     Dates: start: 20080101, end: 20100401
  2. NIFEHEXAL [Concomitant]
     Dosage: 10 MG, UNK

REACTIONS (5)
  - AURICULAR SWELLING [None]
  - BONE DISORDER [None]
  - EAR DISORDER [None]
  - HEARING IMPAIRED [None]
  - TINNITUS [None]
